FAERS Safety Report 13026545 (Version 1)
Quarter: 2016Q4

REPORT INFORMATION
  Report Type: Spontaneous
  Country: US (occurrence: US)
  Receive Date: 20161214
  Receipt Date: 20161214
  Transmission Date: 20170207
  Serious: No
  Sender: FDA-Public Use
  Company Number: US-APOTEX-2016AP010570

PATIENT
  Sex: Female

DRUGS (1)
  1. FENTANYL TRANSDERMAL SYSTEM [Suspect]
     Active Substance: FENTANYL
     Indication: ANALGESIC THERAPY
     Route: 065

REACTIONS (6)
  - Withdrawal syndrome [Unknown]
  - Device issue [Unknown]
  - Product substitution issue [Unknown]
  - Tremor [Unknown]
  - Headache [Unknown]
  - Drug ineffective [Unknown]
